FAERS Safety Report 19798676 (Version 1)
Quarter: 2021Q3

REPORT INFORMATION
  Report Type: Spontaneous
  Country: GB (occurrence: GB)
  Receive Date: 20210907
  Receipt Date: 20210907
  Transmission Date: 20211014
  Serious: Yes (Hospitalization, Other)
  Sender: FDA-Public Use
  Company Number: GB-CELGENEUS-GBR-20210808625

PATIENT
  Sex: Female

DRUGS (4)
  1. TAXOL [Concomitant]
     Active Substance: PACLITAXEL
     Indication: OVARIAN CANCER
     Route: 065
  2. CISPLATIN. [Concomitant]
     Active Substance: CISPLATIN
     Indication: OVARIAN CANCER
     Route: 065
  3. VIDAZA [Suspect]
     Active Substance: AZACITIDINE
     Indication: MYELODYSPLASTIC SYNDROME
     Route: 065
     Dates: start: 20210607
  4. VIDAZA [Suspect]
     Active Substance: AZACITIDINE
     Indication: OVARIAN CANCER

REACTIONS (11)
  - Seizure [Unknown]
  - Full blood count decreased [Unknown]
  - Neuropathy peripheral [Unknown]
  - Feeling abnormal [Unknown]
  - Platelet count decreased [Recovering/Resolving]
  - Haemoglobin abnormal [Recovering/Resolving]
  - Neutrophil count abnormal [Recovering/Resolving]
  - Unevaluable event [Unknown]
  - Abdominal pain upper [Unknown]
  - Diarrhoea [Unknown]
  - Illness [Unknown]

NARRATIVE: CASE EVENT DATE: 2021
